FAERS Safety Report 20958528 (Version 1)
Quarter: 2022Q2

REPORT INFORMATION
  Report Type: Report from Study
  Country: CA (occurrence: CA)
  Receive Date: 20220614
  Receipt Date: 20220614
  Transmission Date: 20220721
  Serious: Yes (Hospitalization, Other)
  Sender: FDA-Public Use
  Company Number: CA-ABBVIE-22K-028-4263423-00

PATIENT
  Age: 73 Year
  Sex: Female

DRUGS (2)
  1. HUMIRA [Suspect]
     Active Substance: ADALIMUMAB
     Indication: Rheumatoid arthritis
     Route: 058
     Dates: start: 20080727, end: 202201
  2. HUMIRA [Suspect]
     Active Substance: ADALIMUMAB
     Route: 058
     Dates: start: 202204

REACTIONS (8)
  - Dialysis [Unknown]
  - Pneumonia [Unknown]
  - Decubitus ulcer [Unknown]
  - Drug ineffective [Unknown]
  - Asthma [Unknown]
  - SARS-CoV-2 test positive [Unknown]
  - Unevaluable event [Unknown]
  - Device issue [Unknown]

NARRATIVE: CASE EVENT DATE: 20220101
